FAERS Safety Report 19902814 (Version 1)
Quarter: 2021Q4

REPORT INFORMATION
  Report Type: Other
  Country: US (occurrence: US)
  Receive Date: 20211001
  Receipt Date: 20211001
  Transmission Date: 20220303
  Serious: Yes (Hospitalization, Other)
  Sender: FDA-Public Use
  Company Number: US-ROCHE-2918285

PATIENT
  Sex: Female

DRUGS (1)
  1. OCREVUS [Suspect]
     Active Substance: OCRELIZUMAB
     Indication: Relapsing multiple sclerosis
     Route: 042
     Dates: start: 2019

REACTIONS (11)
  - Decubitus ulcer [Unknown]
  - Infection [Unknown]
  - Multiple sclerosis relapse [Unknown]
  - Ear pruritus [Unknown]
  - Throat irritation [Unknown]
  - Throat tightness [Unknown]
  - Dysphagia [Unknown]
  - Hypoaesthesia [Recovered/Resolved]
  - Gait inability [Unknown]
  - Fall [Unknown]
  - Drug ineffective [Unknown]
